FAERS Safety Report 23237672 (Version 4)
Quarter: 2024Q1

REPORT INFORMATION
  Report Type: Spontaneous
  Country: JP (occurrence: JP)
  Receive Date: 20231128
  Receipt Date: 20240227
  Transmission Date: 20240410
  Serious: Yes (Death)
  Sender: FDA-Public Use
  Company Number: JP-ELI_LILLY_AND_COMPANY-JP202311011018

PATIENT
  Age: 71 Year
  Sex: Female
  Weight: 46 kg

DRUGS (5)
  1. VERZENIO [Suspect]
     Active Substance: ABEMACICLIB
     Indication: Breast cancer recurrent
     Dosage: 100 MG, UNKNOWN
     Route: 048
     Dates: start: 20231006, end: 20231020
  2. FASLODEX [Concomitant]
     Active Substance: FULVESTRANT
     Indication: Breast cancer recurrent
     Dosage: 500 MG, MONTHLY (1/M)
     Route: 030
     Dates: start: 20230707, end: 20231006
  3. DENOSUMAB [Concomitant]
     Active Substance: DENOSUMAB
     Indication: Metastases to bone
     Dosage: 120 MG
     Route: 058
     Dates: start: 20230901, end: 20231006
  4. CALCIUM CARBONATE\CHOLECALCIFEROL\MAGNESIUM CARBONATE [Concomitant]
     Active Substance: CALCIUM CARBONATE\CHOLECALCIFEROL\MAGNESIUM CARBONATE
     Indication: Prophylaxis
     Dosage: 2 UNK
     Route: 048
     Dates: start: 20230901, end: 20231127
  5. DOXAZOSIN [Concomitant]
     Active Substance: DOXAZOSIN MESYLATE
     Indication: Hypertension
     Dosage: 2 MG
     Route: 048
     Dates: end: 20231127

REACTIONS (4)
  - Respiratory failure [Fatal]
  - Pulmonary embolism [Fatal]
  - Interstitial lung disease [Fatal]
  - Pulmonary tumour thrombotic microangiopathy [Fatal]

NARRATIVE: CASE EVENT DATE: 20231020
